FAERS Safety Report 7324443-1 (Version None)
Quarter: 2011Q1

REPORT INFORMATION
  Report Type: 
  Country: None (occurrence: None)
  Receive Date: 20110301
  Receipt Date: 20110222
  Transmission Date: 20110831
  Serious: No
  Sender: FDA-Public Use
  Company Number: US-PFIZER INC-2011039705

PATIENT
  Sex: Male

DRUGS (2)
  1. LYRICA [Suspect]
     Indication: DIABETIC NEUROPATHY
  2. LYRICA [Suspect]
     Indication: FIBROMYALGIA
     Dosage: 450 MG FOR FIBROMYALGIA AND 300 MG FOR DPN

REACTIONS (1)
  - HYPERHIDROSIS [None]
